FAERS Safety Report 7056511-6 (Version None)
Quarter: 2010Q4

REPORT INFORMATION
  Report Type: 
  Country: None (occurrence: None)
  Receive Date: 20101021
  Receipt Date: 20101013
  Transmission Date: 20110411
  Serious: Yes (Other)
  Sender: FDA-Public Use
  Company Number: US-PFIZER INC-2010128182

PATIENT
  Sex: Female
  Weight: 79.365 kg

DRUGS (8)
  1. CHANTIX [Suspect]
     Indication: SMOKING CESSATION THERAPY
     Dosage: 0.5 MG, 2X/DAY
     Route: 048
     Dates: start: 20101004
  2. ACCOLATE [Concomitant]
     Dosage: UNK
  3. SPIRIVA [Concomitant]
     Dosage: UNK
  4. FORADIL [Concomitant]
     Dosage: UNK
  5. TERBUTALINE [Concomitant]
     Dosage: UNK
  6. THEOPHYLLINE [Concomitant]
     Dosage: UNK
  7. VALSARTAN [Concomitant]
     Dosage: UNK
  8. CLINDAMYCIN [Concomitant]
     Dosage: UNK

REACTIONS (2)
  - NERVOUSNESS [None]
  - WITHDRAWAL SYNDROME [None]
